FAERS Safety Report 16958922 (Version 3)
Quarter: 2021Q1

REPORT INFORMATION
  Report Type: Report from Study
  Country: JP (occurrence: JP)
  Receive Date: 20191024
  Receipt Date: 20210325
  Transmission Date: 20210419
  Serious: Yes (Hospitalization, Other)
  Sender: FDA-Public Use
  Company Number: JP-GILEAD-2018-0378651

PATIENT
  Age: 28 Year
  Sex: Male

DRUGS (4)
  1. EMTRICITABINE/TENOFOVIR ALAFENAMIDE [Suspect]
     Active Substance: EMTRICITABINE\TENOFOVIR
     Indication: HIV INFECTION
     Dosage: 1 DF, QD
     Route: 048
     Dates: start: 20171003
  2. TIVICAY [Suspect]
     Active Substance: DOLUTEGRAVIR SODIUM
     Indication: HIV INFECTION
     Dosage: 1 DF, QD
     Route: 048
     Dates: start: 20171003
  3. GENTACIN [Concomitant]
     Active Substance: GENTAMICIN SULFATE
     Indication: HAEMORRHOIDS
     Dosage: UNK
     Dates: end: 20200120
  4. BORRAZA?G [Concomitant]
     Active Substance: LIDOCAINE\TRIBENOSIDE
     Indication: HAEMORRHOIDS
     Dosage: UNK
     Dates: end: 20200120

REACTIONS (6)
  - Pruritus genital [Recovering/Resolving]
  - Pharyngeal chlamydia infection [Recovering/Resolving]
  - Tinea pedis [Recovering/Resolving]
  - Contusion [Recovered/Resolved]
  - Blood uric acid increased [Recovered/Resolved]
  - Acne [Recovering/Resolving]

NARRATIVE: CASE EVENT DATE: 20171124
